FAERS Safety Report 18483935 (Version 1)
Quarter: 2020Q4

REPORT INFORMATION
  Report Type: Spontaneous
  Country: US (occurrence: US)
  Receive Date: 20201109
  Receipt Date: 20201109
  Transmission Date: 20210114
  Serious: No
  Sender: FDA-Public Use
  Company Number: US-009507513-2010USA011402

PATIENT
  Age: 51 Year
  Sex: Female

DRUGS (3)
  1. INFLIXIMAB [Suspect]
     Active Substance: INFLIXIMAB
     Indication: IMMUNE-MEDIATED PNEUMONITIS
     Dosage: MORE THAN 6 WEEKS
  2. PREDNISONE. [Suspect]
     Active Substance: PREDNISONE
     Indication: IMMUNE-MEDIATED PNEUMONITIS
     Dosage: MORE THAN 6 WEEKS
  3. DECADRON [Suspect]
     Active Substance: DEXAMETHASONE
     Indication: IMMUNE-MEDIATED PNEUMONITIS
     Dosage: MORE THAN 6 WEEKS
     Route: 048

REACTIONS (1)
  - Drug ineffective [Unknown]
